FAERS Safety Report 4309255-5 (Version None)
Quarter: 2004Q1

REPORT INFORMATION
  Report Type: 
  Country: None (occurrence: None)
  Receive Date: 20040301
  Receipt Date: 20040216
  Transmission Date: 20041129
  Serious: Yes (Death)
  Sender: FDA-Public Use
  Company Number: 2004-DE-00892UP

PATIENT
  Age: 76 Year
  Sex: Female

DRUGS (4)
  1. MIRAPEXIN (PRAMIPEXOLE DIHYDROCHLORIDE) (TA) [Suspect]
     Indication: PARKINSON'S DISEASE
     Dosage: 3 MG (1 MG, 3 IN 1 D) PO
     Route: 048
     Dates: start: 20031201, end: 20040211
  2. SINEMET (NR) [Concomitant]
  3. REMERON (NR) [Concomitant]
  4. LEXOTANIL (NR) [Concomitant]

REACTIONS (1)
  - PANCREATITIS NECROTISING [None]
